FAERS Safety Report 5320302-4 (Version None)
Quarter: 2007Q2

REPORT INFORMATION
  Report Type: 
  Country: None (occurrence: None)
  Receive Date: 20070503
  Receipt Date: 20070503
  Transmission Date: 20071010
  Serious: Yes (Death, Life-Threatening, Hospitalization)
  Sender: FDA-Public Use
  Company Number: None

PATIENT
  Age: 77 Year
  Sex: Female

DRUGS (1)
  1. WARFARIN [Suspect]
     Dosage: PO
     Route: 048

REACTIONS (4)
  - FALL [None]
  - MENTAL STATUS CHANGES [None]
  - RADIUS FRACTURE [None]
  - SUBDURAL HAEMORRHAGE [None]
